FAERS Safety Report 12833892 (Version 2)
Quarter: 2016Q4

REPORT INFORMATION
  Report Type: Spontaneous
  Country: US (occurrence: US)
  Receive Date: 20161010
  Receipt Date: 20161010
  Transmission Date: 20170207
  Serious: Yes (Hospitalization)
  Sender: FDA-Public Use
  Company Number: US-ASTRAZENECA-2016SF06332

PATIENT
  Age: 30705 Day
  Sex: Female
  Weight: 48.1 kg

DRUGS (1)
  1. MERREM [Suspect]
     Active Substance: MEROPENEM
     Indication: LOCALISED INFECTION
     Route: 042
     Dates: start: 20160924

REACTIONS (2)
  - Hepatic pain [Unknown]
  - Documented hypersensitivity to administered product [Unknown]

NARRATIVE: CASE EVENT DATE: 20160924
